FAERS Safety Report 9318102 (Version 1)
Quarter: 2013Q2

REPORT INFORMATION
  Report Type: Spontaneous
  Country: US (occurrence: US)
  Receive Date: 20130530
  Receipt Date: 20130530
  Transmission Date: 20140414
  Serious: No
  Sender: FDA-Public Use
  Company Number: US-GLAXOSMITHKLINE-A1005083A

PATIENT
  Age: 55 Year
  Sex: Female

DRUGS (4)
  1. VENTOLIN [Suspect]
     Indication: RESPIRATORY TRACT CONGESTION
     Route: 055
     Dates: start: 20121207, end: 20121209
  2. COUGH SYRUP [Concomitant]
  3. IOPHEN [Concomitant]
  4. AZITHROMYCIN [Concomitant]

REACTIONS (2)
  - Drug ineffective [Not Recovered/Not Resolved]
  - Product quality issue [Unknown]
